FAERS Safety Report 17533514 (Version 1)
Quarter: 2020Q1

REPORT INFORMATION
  Report Type: Spontaneous
  Country: US (occurrence: US)
  Receive Date: 20200304
  Receipt Date: 20200304
  Transmission Date: 20200409
  Serious: Yes (Other)
  Sender: FDA-Public Use
  Company Number: None

PATIENT
  Age: 55 Year
  Sex: Female
  Weight: 59.4 kg

DRUGS (16)
  1. LEVOCARNITINE. [Concomitant]
     Active Substance: LEVOCARNITINE
  2. MAGNESIUM ORAL [Concomitant]
  3. LORAZEPAM. [Concomitant]
     Active Substance: LORAZEPAM
  4. TRASTUZUMAB. [Suspect]
     Active Substance: TRASTUZUMAB
     Indication: METASTASES TO CENTRAL NERVOUS SYSTEM
     Route: 042
     Dates: start: 20190625, end: 20191008
  5. FLUOROURACIL. [Concomitant]
     Active Substance: FLUOROURACIL
  6. BUPROPION. [Concomitant]
     Active Substance: BUPROPION
  7. GABAPENTIN. [Concomitant]
     Active Substance: GABAPENTIN
  8. ATEZOLIZUMAB. [Suspect]
     Active Substance: ATEZOLIZUMAB
     Indication: METASTASES TO CENTRAL NERVOUS SYSTEM
     Dosage: ?          OTHER FREQUENCY:Q3WEEKS;?
     Route: 042
     Dates: start: 20190625, end: 20191008
  9. LIDOCAINE. [Concomitant]
     Active Substance: LIDOCAINE
  10. MIRTAZAPINE. [Concomitant]
     Active Substance: MIRTAZAPINE
  11. DEXAMETHASONE. [Concomitant]
     Active Substance: DEXAMETHASONE
  12. ATEZOLIZUMAB. [Suspect]
     Active Substance: ATEZOLIZUMAB
     Indication: BREAST CANCER
     Dosage: ?          OTHER FREQUENCY:Q3WEEKS;?
     Route: 042
     Dates: start: 20190625, end: 20191008
  13. TRASTUZUMAB. [Suspect]
     Active Substance: TRASTUZUMAB
     Indication: BREAST CANCER
     Route: 042
     Dates: start: 20190625, end: 20191008
  14. CHOLECALCIFEROL [Concomitant]
     Active Substance: CHOLECALCIFEROL
  15. CAMPHOR-MENTHOL [Concomitant]
  16. THC [Concomitant]
     Active Substance: DRONABINOL

REACTIONS (2)
  - Vasogenic cerebral oedema [None]
  - Hemiparesis [None]

NARRATIVE: CASE EVENT DATE: 20191010
